FAERS Safety Report 6115989-2 (Version None)
Quarter: 2009Q1

REPORT INFORMATION
  Report Type: 
  Country: None (occurrence: None)
  Receive Date: 20090314
  Receipt Date: 20090116
  Transmission Date: 20090719
  Serious: No
  Sender: FDA-Public Use
  Company Number: US-ABBOTT-08P-163-0476581-00

PATIENT
  Sex: Female
  Weight: 63.56 kg

DRUGS (10)
  1. HUMIRA [Suspect]
     Indication: CROHN'S DISEASE
     Route: 058
     Dates: start: 20080527
  2. HUMIRA [Suspect]
  3. AMBIEN CR [Concomitant]
     Indication: INSOMNIA
     Dosage: WITH VALIUM AND SOMA
     Route: 048
  4. VALIUM [Concomitant]
     Indication: INSOMNIA
     Dosage: TAKES ALONG WITH AMBIEN CR AND SOMA
     Route: 048
  5. SOMA COMPOUND [Concomitant]
     Indication: ANTIINFLAMMATORY THERAPY
     Dosage: TAKES ALONG WITH AMBIEN AND VALIUM FOR SLEEP
     Route: 048
  6. SOMA COMPOUND [Concomitant]
     Indication: BACK PAIN
  7. DURAGESIC-100 [Concomitant]
     Indication: BACK PAIN
     Route: 061
  8. OS-CAL [Concomitant]
     Indication: MINERAL SUPPLEMENTATION
     Route: 048
  9. FORVIA MULTIVITAMIN W/MIN [Concomitant]
     Indication: VITAMIN SUPPLEMENTATION
     Route: 048
  10. BOOST [Concomitant]
     Indication: MEDICAL DIET

REACTIONS (7)
  - BURNING SENSATION [None]
  - DEAFNESS [None]
  - EAR DISCOMFORT [None]
  - NECK INJURY [None]
  - PRURITUS [None]
  - PSORIASIS [None]
  - ROAD TRAFFIC ACCIDENT [None]
